FAERS Safety Report 9851292 (Version 1)
Quarter: 2014Q1

REPORT INFORMATION
  Report Type: Spontaneous
  Country: US (occurrence: US)
  Receive Date: 20140129
  Receipt Date: 20140129
  Transmission Date: 20141002
  Serious: Yes (Other)
  Sender: FDA-Public Use
  Company Number: US-ROCHE-1338696

PATIENT
  Sex: Female

DRUGS (2)
  1. LUCENTIS [Suspect]
     Indication: RETINAL VEIN OCCLUSION
     Dosage: RIGHT EYE
     Route: 065
     Dates: start: 201305, end: 201309
  2. SYNTHROID [Concomitant]

REACTIONS (3)
  - Blindness [Unknown]
  - Vision blurred [Recovered/Resolved]
  - Vitreous floaters [Unknown]
